FAERS Safety Report 5325047-2 (Version None)
Quarter: 2007Q2

REPORT INFORMATION
  Report Type: 
  Country: None (occurrence: None)
  Receive Date: 20070510
  Receipt Date: 20070510
  Transmission Date: 20071010
  Serious: Yes (Life-Threatening)
  Sender: FDA-Public Use
  Company Number: None

PATIENT
  Age: 57 Year
  Sex: Female
  Weight: 84.8226 kg

DRUGS (1)
  1. ZELNORM [Suspect]
     Indication: IRRITABLE BOWEL SYNDROME
     Dosage: ONE TABLET BY MOUTH  TWICE DAILY
     Route: 048
     Dates: start: 20070301, end: 20070329

REACTIONS (4)
  - CHEST PAIN [None]
  - CONTUSION [None]
  - DYSPNOEA [None]
  - MUSCULAR WEAKNESS [None]
